FAERS Safety Report 22109624 (Version 1)
Quarter: 2023Q1

REPORT INFORMATION
  Report Type: Spontaneous
  Country: None (occurrence: US)
  Receive Date: 20230317
  Receipt Date: 20230317
  Transmission Date: 20230418
  Serious: Yes (Life-Threatening)
  Sender: FDA-Public Use
  Company Number: US-i-Health, Inc.-2139193

PATIENT
  Sex: Female

DRUGS (7)
  1. HOMEOPATHICS [Suspect]
     Active Substance: HOMEOPATHICS
     Indication: Vulvovaginal mycotic infection
     Route: 048
     Dates: start: 20230224
  2. TAPAZOLE [Concomitant]
     Active Substance: METHIMAZOLE
  3. ATENOLOL [Concomitant]
     Active Substance: ATENOLOL
  4. Wexela [Concomitant]
  5. SINGULAIR [Concomitant]
     Active Substance: MONTELUKAST SODIUM
  6. VITAMIN B12 [Concomitant]
     Active Substance: CYANOCOBALAMIN
  7. VITAMIN C [Concomitant]
     Active Substance: ASCORBIC ACID

REACTIONS (2)
  - Swelling face [Unknown]
  - Dyspnoea [Unknown]

NARRATIVE: CASE EVENT DATE: 20230225
